FAERS Safety Report 7722688-X (Version None)
Quarter: 2011Q3

REPORT INFORMATION
  Report Type: 
  Country: None (occurrence: None)
  Receive Date: 20110831
  Receipt Date: 20110825
  Transmission Date: 20111222
  Serious: Yes (Death)
  Sender: FDA-Public Use
  Company Number: US-GENENTECH-323666

PATIENT
  Sex: Female
  Weight: 59 kg

DRUGS (1)
  1. RANIBIZUMAB [Suspect]
     Indication: MACULAR OEDEMA
     Dosage: 2 MG, PRN
     Route: 031
     Dates: start: 20100519

REACTIONS (1)
  - DEATH [None]
